FAERS Safety Report 7074471-9 (Version None)
Quarter: 2010Q4

REPORT INFORMATION
  Report Type: 
  Country: None (occurrence: None)
  Receive Date: 20101029
  Receipt Date: 20101020
  Transmission Date: 20110411
  Serious: Yes (Hospitalization)
  Sender: FDA-Public Use
  Company Number: US-US-EMD SERONO, INC.-7023360

PATIENT
  Sex: Male
  Weight: 118 kg

DRUGS (7)
  1. REBIF [Suspect]
     Indication: MULTIPLE SCLEROSIS
     Route: 058
     Dates: start: 20100826
  2. COUMADIN [Concomitant]
     Indication: THROMBOSIS
  3. LITHIUM [Concomitant]
     Indication: BIPOLAR DISORDER
  4. ZOLOFT [Concomitant]
     Indication: ANXIETY
  5. NEURONTIN [Concomitant]
     Indication: MUSCLE SPASMS
  6. LASIX [Concomitant]
     Indication: FLUID RETENTION
  7. BACLOFEN [Concomitant]
     Indication: MUSCLE SPASMS

REACTIONS (4)
  - DECUBITUS ULCER [None]
  - INJECTION SITE ERYTHEMA [None]
  - MULTIPLE SCLEROSIS RELAPSE [None]
  - PNEUMONIA [None]
